FAERS Safety Report 14392277 (Version 2)
Quarter: 2018Q1

REPORT INFORMATION
  Report Type: Spontaneous
  Country: US (occurrence: US)
  Receive Date: 20180116
  Receipt Date: 20180119
  Transmission Date: 20180509
  Serious: Yes (Other)
  Sender: FDA-Public Use
  Company Number: US-LUNDBECK-DKLU2042258

PATIENT
  Age: 52 Year
  Sex: Female

DRUGS (1)
  1. NORTHERA [Suspect]
     Active Substance: DROXIDOPA
     Indication: ORTHOSTATIC HYPOTENSION
     Dosage: SCHEDULE OTHER
     Route: 048

REACTIONS (6)
  - Fall [Unknown]
  - Intentional underdose [Unknown]
  - Tremor [Unknown]
  - Lower limb fracture [Unknown]
  - Loss of consciousness [Unknown]
  - Ankle fracture [Unknown]

NARRATIVE: CASE EVENT DATE: 20171208
